FAERS Safety Report 12848670 (Version 1)
Quarter: 2016Q4

REPORT INFORMATION
  Report Type: Spontaneous
  Country: US (occurrence: US)
  Receive Date: 20161014
  Receipt Date: 20161014
  Transmission Date: 20170207
  Serious: No
  Sender: FDA-Public Use
  Company Number: US-JNJFOC-20160904468

PATIENT
  Sex: Female

DRUGS (2)
  1. TYLENOL REGULAR STRENGTH [Suspect]
     Active Substance: ACETAMINOPHEN
     Indication: ARTHRALGIA
     Route: 048
  2. TYLENOL PRECISE ES PAIN RELIEV CRM [Concomitant]
     Indication: ARTHRALGIA
     Route: 065

REACTIONS (2)
  - Drug ineffective [Unknown]
  - Intentional underdose [Unknown]
